FAERS Safety Report 14080814 (Version 2)
Quarter: 2017Q4

REPORT INFORMATION
  Report Type: Spontaneous
  Country: US (occurrence: US)
  Receive Date: 20171012
  Receipt Date: 20171025
  Transmission Date: 20180321
  Serious: Yes (Death)
  Sender: FDA-Public Use
  Company Number: US-MALLINCKRODT-T201704082

PATIENT
  Sex: Male

DRUGS (2)
  1. FENTANYL TRANSDERMAL SYSTEM [Suspect]
     Active Substance: FENTANYL
     Indication: PAIN
     Dosage: 100 MG 2 PATCHES AT A TIME
     Route: 065
  2. SUBSYS [Suspect]
     Active Substance: FENTANYL
     Indication: PAIN

REACTIONS (2)
  - Metastases to central nervous system [Fatal]
  - Lung cancer metastatic [Fatal]
